FAERS Safety Report 6619367-9 (Version None)
Quarter: 2010Q1

REPORT INFORMATION
  Report Type: 
  Country: None (occurrence: None)
  Receive Date: 20100303
  Receipt Date: 20100215
  Transmission Date: 20100710
  Serious: Yes (Other)
  Sender: FDA-Public Use
  Company Number: CL-74-2010

PATIENT
  Age: 77 Year
  Sex: Female
  Weight: 90.7 kg

DRUGS (7)
  1. GABAPENTIN [Suspect]
     Indication: NEURALGIA
     Dosage: 300 MG, TWO IN THE  MORNING ONE IN THE AFTERNOON  AND ONE IN THE NIGHT
     Dates: start: 20080101, end: 20100106
  2. FLAGYL [Suspect]
     Indication: LIVER ABSCESS
     Dosage: (HIGH DOSE)
  3. TOPROL-XL [Concomitant]
  4. WARFARIN SODIUM [Concomitant]
  5. ZESTRIL [Concomitant]
  6. CARDURA [Concomitant]
  7. HYDROCHLOROTHIAZIDE [Concomitant]

REACTIONS (5)
  - DRUG INEFFECTIVE [None]
  - PAIN [None]
  - PERIPHERAL SENSORY NEUROPATHY [None]
  - PRODUCT QUALITY ISSUE [None]
  - WALKING AID USER [None]
